FAERS Safety Report 17406932 (Version 1)
Quarter: 2020Q1

REPORT INFORMATION
  Report Type: Spontaneous
  Country: US (occurrence: US)
  Receive Date: 20200211
  Receipt Date: 20200211
  Transmission Date: 20200409
  Serious: Yes (Life-Threatening)
  Sender: FDA-Public Use
  Company Number: None

PATIENT
  Age: 51 Year
  Sex: Female

DRUGS (2)
  1. AXICABTAGENE CILOLEUCEL [Suspect]
     Active Substance: AXICABTAGENE CILOLEUCEL
     Dates: start: 20190603
  2. TOCILIZUMAB. [Suspect]
     Active Substance: TOCILIZUMAB

REACTIONS (8)
  - Hypotension [None]
  - Tachycardia [None]
  - Pyrexia [None]
  - Cytokine release syndrome [None]
  - Peripheral swelling [None]
  - Ejection fraction decreased [None]
  - Diffuse large B-cell lymphoma [None]
  - Arthralgia [None]

NARRATIVE: CASE EVENT DATE: 20190603
